FAERS Safety Report 7751406-4 (Version None)
Quarter: 2011Q3

REPORT INFORMATION
  Report Type: 
  Country: None (occurrence: None)
  Receive Date: 20110914
  Receipt Date: 20110908
  Transmission Date: 20111222
  Serious: Yes (Hospitalization)
  Sender: FDA-Public Use
  Company Number: ES-BAYER-2011-083120

PATIENT
  Age: 34 Year
  Sex: Male

DRUGS (1)
  1. MOXIFLOXACIN [Suspect]
     Indication: RESPIRATORY TRACT INFECTION
     Dosage: UNK
     Route: 065
     Dates: start: 20110501, end: 20110501

REACTIONS (4)
  - DYSPNOEA [None]
  - COUGH [None]
  - CHEST DISCOMFORT [None]
  - ANGIOEDEMA [None]
